FAERS Safety Report 11116249 (Version 1)
Quarter: 2015Q2

REPORT INFORMATION
  Report Type: Spontaneous
  Country: AU (occurrence: AU)
  Receive Date: 20150515
  Receipt Date: 20150515
  Transmission Date: 20150821
  Serious: Yes (Hospitalization, Other)
  Sender: FDA-Public Use
  Company Number: AU-ACTAVIS-2015-09468

PATIENT
  Age: 65 Year
  Sex: Female

DRUGS (1)
  1. PHENYTOIN (AMALLC) [Suspect]
     Active Substance: PHENYTOIN
     Indication: ALCOHOLIC SEIZURE
     Dosage: 100 MG, DAILY
     Route: 065

REACTIONS (3)
  - Anticonvulsant drug level increased [Recovering/Resolving]
  - Gamma-glutamyltransferase increased [Unknown]
  - Nystagmus [Unknown]
